FAERS Safety Report 9438009 (Version 1)
Quarter: 2013Q3

REPORT INFORMATION
  Report Type: Spontaneous
  Country: US (occurrence: US)
  Receive Date: 20130802
  Receipt Date: 20130802
  Transmission Date: 20140515
  Serious: Yes (Hospitalization)
  Sender: FDA-Public Use
  Company Number: US-BRISTOL-MYERS SQUIBB COMPANY-16706863

PATIENT
  Age: 60 Year
  Sex: Male

DRUGS (3)
  1. COUMADIN [Suspect]
     Dosage: REG 1
  2. ASPIRIN [Suspect]
     Dosage: 1DF= REG 1
  3. LETAIRIS [Suspect]
     Dosage: TABS
     Route: 048
     Dates: start: 20120116

REACTIONS (1)
  - Upper gastrointestinal haemorrhage [Unknown]
